FAERS Safety Report 8813761 (Version 1)
Quarter: 2012Q4

REPORT INFORMATION
  Report Type: 
  Country: BR (occurrence: BR)
  Receive Date: 20120928
  Receipt Date: 20120928
  Transmission Date: 20130627
  Serious: Yes (Other)
  Sender: FDA-Public Use
  Company Number: BR-BRISTOL-MYERS SQUIBB COMPANY-16978314

PATIENT
  Age: 63 Year
  Sex: Male
  Weight: 80 kg

DRUGS (3)
  1. APROZIDE [Suspect]
     Indication: AORTIC VALVE INCOMPETENCE
     Dosage: Aprozide:300mg+12.5mg
1DF: 1 tab
     Route: 048
     Dates: start: 2012
  2. NORVASC [Concomitant]
     Indication: BLOOD PRESSURE
  3. DIAZEPAM [Concomitant]
     Indication: BLOOD PRESSURE

REACTIONS (1)
  - Osteomyelitis [Recovered/Resolved with Sequelae]
